FAERS Safety Report 5259741-9 (Version None)
Quarter: 2007Q1

REPORT INFORMATION
  Report Type: 
  Country: None (occurrence: None)
  Receive Date: 20070309
  Receipt Date: 20070228
  Transmission Date: 20070707
  Serious: Yes (Other)
  Sender: FDA-Public Use
  Company Number: 2006UW11147

PATIENT
  Sex: Male
  Weight: 90.9 kg

DRUGS (5)
  1. SEROQUEL [Suspect]
     Route: 048
     Dates: start: 20000101
  2. ZYPREXA [Suspect]
  3. STELAZINE [Concomitant]
  4. THORAZINE [Concomitant]
  5. METHADONE HCL [Concomitant]

REACTIONS (2)
  - DIABETES MELLITUS [None]
  - KETOACIDOSIS [None]
